FAERS Safety Report 4830544-X (Version None)
Quarter: 2005Q4

REPORT INFORMATION
  Report Type: 
  Country: None (occurrence: None)
  Receive Date: 20051115
  Receipt Date: 20051101
  Transmission Date: 20060501
  Serious: Yes (Death, Hospitalization, Other)
  Sender: FDA-Public Use
  Company Number: 2005-01874

PATIENT
  Age: 59 Year
  Sex: Male

DRUGS (9)
  1. VELCADE [Suspect]
     Indication: MULTIPLE MYELOMA
     Dosage: 2.60 MG; SEE IMAGE
     Dates: start: 20030605
  2. VELCADE [Suspect]
     Indication: MULTIPLE MYELOMA
     Dosage: 2.60 MG; SEE IMAGE
     Dates: start: 20030805
  3. PROTONIX [Concomitant]
  4. FENTANYL (FENTANYL) PATCH [Concomitant]
  5. ALLEGRA [Concomitant]
  6. NEURONTIN [Concomitant]
  7. ATIVAN [Concomitant]
  8. ZOLOFT [Concomitant]
  9. LEVOFLOXACIN [Concomitant]

REACTIONS (10)
  - ANAEMIA [None]
  - BODY TEMPERATURE DECREASED [None]
  - CACHEXIA [None]
  - CHILLS [None]
  - GASTRODUODENAL ULCER [None]
  - HEART RATE INCREASED [None]
  - PLATELET COUNT DECREASED [None]
  - PYREXIA [None]
  - UPPER GASTROINTESTINAL HAEMORRHAGE [None]
  - WEIGHT DECREASED [None]
